FAERS Safety Report 13446830 (Version 2)
Quarter: 2017Q2

REPORT INFORMATION
  Report Type: Spontaneous
  Country: US (occurrence: US)
  Receive Date: 20170417
  Receipt Date: 20170504
  Transmission Date: 20170830
  Serious: No
  Sender: FDA-Public Use
  Company Number: US-PFIZER INC-2017150244

PATIENT
  Age: 36 Year
  Sex: Male

DRUGS (32)
  1. IDARUBICIN HCL [Suspect]
     Active Substance: IDARUBICIN HYDROCHLORIDE
     Indication: ACUTE LYMPHOCYTIC LEUKAEMIA
     Dosage: UNK
     Dates: start: 20161215
  2. CLOFARABINE. [Suspect]
     Active Substance: CLOFARABINE
     Indication: ACUTE LYMPHOCYTIC LEUKAEMIA
     Dosage: 40 MG, UNK (PER ADJUSTED BSA)
     Dates: start: 20170124
  3. PRINZIDE [Concomitant]
     Active Substance: HYDROCHLOROTHIAZIDE\LISINOPRIL
     Dosage: 1 DF, 1X/DAY [20 MG]/ [12.5 MG]
     Route: 048
  4. MAG-OX [Concomitant]
     Active Substance: MAGNESIUM OXIDE
     Dosage: 400 MG, 2X/DAY
     Route: 048
     Dates: start: 20170317
  5. DELTASONE [Concomitant]
     Active Substance: PREDNISONE
     Dosage: 100 MG, 1X/DAY(2 TABLETS (100 MG TOTAL) BY MOUTH 1 (ONE) TIME A DAY)
     Route: 048
  6. XARELTO [Concomitant]
     Active Substance: RIVAROXABAN
     Indication: THROMBOSIS
  7. NEURONTIN [Concomitant]
     Active Substance: GABAPENTIN
     Dosage: 300 MG, 3X/DAY
     Route: 048
     Dates: start: 20170313
  8. FLUDARABINE PHOSPHATE. [Suspect]
     Active Substance: FLUDARABINE PHOSPHATE
     Indication: ACUTE LYMPHOCYTIC LEUKAEMIA
     Dosage: UNK
     Dates: start: 20161215
  9. ATIVAN [Concomitant]
     Active Substance: LORAZEPAM
     Indication: ANXIETY
     Dosage: 0.5 MG, AS NEEDED(EVERY 8(EIGHT) HOURS AS NEEDED)
     Route: 048
     Dates: start: 20170330
  10. VITAMIN B-6 [Concomitant]
     Active Substance: PYRIDOXINE
     Dosage: 100 MG, 1X/DAY(2 TABLETS (100 MG TOTAL) BY MOUTH 1 (ONE) TIME A DAY)
     Route: 048
     Dates: start: 20170306
  11. PERI-COLACE [Concomitant]
     Active Substance: CASANTHRANOL\DOCUSATE SODIUM
     Dosage: 1 DF, 2X/DAY [8.6 MG]/[50 MG]
     Route: 048
     Dates: start: 20170304
  12. LIDOCAINE. [Concomitant]
     Active Substance: LIDOCAINE
     Dosage: UNK, AS NEEDED(THREE TIMES A DAY AS NEEDED )
     Route: 061
     Dates: start: 20170313
  13. OXYCODONE [Concomitant]
     Active Substance: OXYCODONE
     Dosage: 80 MG, 3X/DAY (EVERY 8 (EIGHT) HOURS)
     Route: 048
  14. BACTRIM DS [Concomitant]
     Active Substance: SULFAMETHOXAZOLE\TRIMETHOPRIM
     Dosage: 1 DF, 2 TIMES A DAY (ON 2 DAYS PER WEEK)[800 MG]/[60 MG
     Route: 048
     Dates: start: 20170313
  15. MS CONTIN [Concomitant]
     Active Substance: MORPHINE SULFATE
     Dosage: 120 MG, 3X/DAY
     Route: 048
     Dates: start: 20170313
  16. CYTARABINE. [Suspect]
     Active Substance: CYTARABINE
     Dosage: 1 G/M2, UNK
     Dates: start: 20170124
  17. ZOVIRAX [Concomitant]
     Active Substance: ACYCLOVIR
     Dosage: 400 MG, 2X/DAY
     Route: 048
  18. LEVAQUIN [Concomitant]
     Active Substance: LEVOFLOXACIN
     Indication: NEUTROPHIL COUNT DECREASED
     Dosage: 500 MG, 1X/DAY
     Route: 048
     Dates: start: 20161015
  19. VFEND [Concomitant]
     Active Substance: VORICONAZOLE
     Dosage: 200 MG, 2X/DAY(EVERY 12 (TWELVE) HOURS)
     Route: 048
     Dates: start: 20170227
  20. ZYLOPRIM [Concomitant]
     Active Substance: ALLOPURINOL
     Dosage: 300 MG, 1X/DAY
     Route: 048
  21. COMPAZINE [Concomitant]
     Active Substance: PROCHLORPERAZINE MALEATE
     Indication: NAUSEA
     Dosage: UNK, AS NEEDED(1-2 TABLETS (5-10 MG TOTAL) BY MOUTH EVERY 6 HRS)
     Route: 048
     Dates: start: 20161220
  22. COMPAZINE [Concomitant]
     Active Substance: PROCHLORPERAZINE MALEATE
     Indication: VOMITING
  23. POTASSIUM CHLORIDE. [Concomitant]
     Active Substance: POTASSIUM CHLORIDE
     Dosage: 20 MEQ, 2X/DAY
     Route: 048
     Dates: start: 20170208
  24. LEXAPRO [Concomitant]
     Active Substance: ESCITALOPRAM OXALATE
     Dosage: 15 MG, DAILY [1.5 TABLETS (15 MG) EVERY DAY]
     Route: 048
     Dates: start: 20170131
  25. ATIVAN [Concomitant]
     Active Substance: LORAZEPAM
     Indication: NAUSEA
  26. OXYCODONE [Concomitant]
     Active Substance: OXYCODONE
     Indication: PAIN
     Dosage: UUNK, AS NEEDED(0.5-1 TABLETS (10- 20 MG TOTAL) BY MOUTH EVERY 3 (THREE) HOURS AS NEEDED )
     Route: 048
     Dates: start: 20170313
  27. ZESTORETIC [Concomitant]
     Active Substance: HYDROCHLOROTHIAZIDE\LISINOPRIL
     Dosage: 1 DF, 1X/DAY [20 MG]/[12.5 MG]
     Route: 048
  28. ALUMIN HYDROXIDE/DIPHENHYDRA HCL/LIDOCAIN HCL/MG HYDROXIDE/SIMETHICONE [Concomitant]
     Indication: MUCOSAL INFLAMMATION
     Dosage: 5 ML, 4X/DAY(SWISH AND SPLIT)
     Dates: start: 20170131
  29. CYTARABINE. [Suspect]
     Active Substance: CYTARABINE
     Indication: ACUTE LYMPHOCYTIC LEUKAEMIA
     Dosage: UNK
     Dates: start: 20161215
  30. TRIGLIDE [Concomitant]
     Active Substance: FENOFIBRATE
     Dosage: 160 MG, 1X/DAY
     Route: 048
     Dates: start: 20170317
  31. HYDROCORTISONE IN EUCERIN [Concomitant]
     Dosage: UNK, 2X/DAY(HYDROCORTISONE 1 % IN EUCERIN CREAM 1:1 240 G)
     Route: 061
     Dates: start: 20170131
  32. KEPPRA [Concomitant]
     Active Substance: LEVETIRACETAM
     Indication: SEIZURE
     Dosage: 500 MG, 2X/DAY
     Route: 048
     Dates: start: 20170117

REACTIONS (1)
  - Neoplasm progression [Unknown]
